FAERS Safety Report 26096456 (Version 1)
Quarter: 2025Q4

REPORT INFORMATION
  Report Type: Spontaneous
  Country: JP (occurrence: JP)
  Receive Date: 20251127
  Receipt Date: 20251127
  Transmission Date: 20260117
  Serious: Yes (Other)
  Sender: RANBAXY
  Company Number: JP-SUN PHARMACEUTICAL INDUSTRIES INC-2025R1-534517

PATIENT
  Age: 70 Year
  Sex: Female

DRUGS (2)
  1. METHIMAZOLE [Interacting]
     Active Substance: METHIMAZOLE
     Indication: Hyperthyroidism
     Dosage: 15 MILLIGRAM, QD
     Route: 065
  2. POTASSIUM IODIDE [Concomitant]
     Active Substance: POTASSIUM IODIDE
     Indication: Hyperthyroidism
     Dosage: 50 MILLIGRAM, QD
     Route: 065

REACTIONS (4)
  - Headache [Unknown]
  - Arthralgia [Recovered/Resolved]
  - C-reactive protein increased [Unknown]
  - Pyrexia [Recovered/Resolved]
